FAERS Safety Report 14092211 (Version 1)
Quarter: 2017Q4

REPORT INFORMATION
  Report Type: Spontaneous
  Country: US (occurrence: US)
  Receive Date: 20171014
  Receipt Date: 20171014
  Transmission Date: 20180321
  Serious: Yes (Life-Threatening, Hospitalization, Other)
  Sender: FDA-Public Use
  Company Number: None

PATIENT
  Sex: Male
  Weight: 67.5 kg

DRUGS (1)
  1. SUBOXONE [Suspect]
     Active Substance: BUPRENORPHINE HYDROCHLORIDE\NALOXONE HYDROCHLORIDE
     Indication: DRUG DEPENDENCE
     Route: 060
     Dates: start: 20140930, end: 20150808

REACTIONS (6)
  - Cardiovascular disorder [None]
  - Weight decreased [None]
  - Arrhythmia [None]
  - Hypersensitivity [None]
  - Seizure [None]
  - Panic attack [None]

NARRATIVE: CASE EVENT DATE: 20141231
